FAERS Safety Report 5808167-5 (Version None)
Quarter: 2008Q3

REPORT INFORMATION
  Report Type: 
  Country: None (occurrence: None)
  Receive Date: 20080708
  Receipt Date: 20080624
  Transmission Date: 20090109
  Serious: Yes (Other)
  Sender: FDA-Public Use
  Company Number: TUK2008A00066

PATIENT
  Age: 77 Year
  Sex: Female

DRUGS (5)
  1. ACTOS [Suspect]
     Indication: DIABETES MELLITUS
     Dosage: 15 MG, ORAL
     Route: 048
     Dates: start: 20080418, end: 20080513
  2. METFORMIN HCL [Concomitant]
  3. RAMPRIL (RAMIPRIL) [Concomitant]
  4. TAMOXIFEN CITRATE [Concomitant]
  5. WARFARIN SODIUM [Concomitant]

REACTIONS (2)
  - DEPRESSION [None]
  - SUICIDAL IDEATION [None]
